FAERS Safety Report 10073226 (Version 1)
Quarter: 2014Q2

REPORT INFORMATION
  Report Type: Spontaneous
  Country: US (occurrence: US)
  Receive Date: 20140411
  Receipt Date: 20140411
  Transmission Date: 20141212
  Serious: Yes (Hospitalization, Other)
  Sender: FDA-Public Use
  Company Number: US-TEVA-474072USA

PATIENT
  Sex: Female

DRUGS (2)
  1. PROAIR HFA [Suspect]
     Indication: ASTHMA
  2. LOTENSIN [Suspect]
     Indication: HYPERTENSION

REACTIONS (5)
  - Fall [Recovered/Resolved]
  - Cerebral haematoma [Unknown]
  - Asthma [Recovered/Resolved]
  - Contusion [Unknown]
  - Dyspnoea [Unknown]
